FAERS Safety Report 9899495 (Version 1)
Quarter: 2014Q1

REPORT INFORMATION
  Report Type: Spontaneous
  Country: IT (occurrence: IT)
  Receive Date: 20140214
  Receipt Date: 20140214
  Transmission Date: 20141002
  Serious: Yes (Disabling)
  Sender: FDA-Public Use
  Company Number: IT-MYLANLABS-2014S1002661

PATIENT
  Age: 72 Year
  Sex: Male

DRUGS (11)
  1. ASPIRIN [Interacting]
     Dosage: 100 MG/DAY
     Route: 065
  2. BISOPROLOL [Interacting]
     Dosage: 2.5 MG/DAY
     Route: 065
  3. ALLOPURINOL [Interacting]
     Dosage: 150 MG/DAY
     Route: 065
  4. OMEPRAZOLE [Interacting]
     Dosage: 20 MG/DAY
     Route: 065
  5. FUROSEMIDE [Interacting]
     Route: 065
  6. QUETIAPINE [Interacting]
     Indication: PSYCHOTHERAPY
     Dosage: 50 MG/DAY
     Route: 065
  7. SERTRALINE [Interacting]
     Indication: ANTIDEPRESSANT THERAPY
     Dosage: 25 MG/DAY
     Route: 065
  8. ATORVASTATIN [Concomitant]
     Dosage: 40 MG/DAY
     Route: 065
  9. NITROGLYCERIN [Concomitant]
     Dosage: 10 MG/DAY
     Route: 062
  10. VALSARTAN [Concomitant]
     Dosage: 20 MG/DAY
     Route: 065
  11. RANOLAZINE [Suspect]
     Indication: ANGINA PECTORIS
     Dosage: 1000 MG/DAY
     Route: 065
     Dates: start: 201107

REACTIONS (2)
  - Rhabdomyolysis [Recovered/Resolved]
  - Drug interaction [Recovered/Resolved]
